FAERS Safety Report 26065459 (Version 1)
Quarter: 2025Q4

REPORT INFORMATION
  Report Type: Report from Study
  Country: US (occurrence: US)
  Receive Date: 20251119
  Receipt Date: 20251119
  Transmission Date: 20260117
  Serious: Yes (Other)
  Sender: ASTELLAS
  Company Number: US-ASTELLAS-2025-AER-063684

PATIENT
  Age: 68 Year
  Sex: Male

DRUGS (3)
  1. XTANDI [Suspect]
     Active Substance: ENZALUTAMIDE
     Indication: Prostate cancer
     Route: 048
     Dates: start: 20240808
  2. XTANDI [Suspect]
     Active Substance: ENZALUTAMIDE
     Dosage: DOSE DECREASED
     Route: 048
  3. ELIGARD [Concomitant]
     Active Substance: LEUPROLIDE ACETATE
     Indication: Prostate cancer
     Dosage: EVERY 3 MONTHS
     Route: 065
     Dates: start: 20240715

REACTIONS (8)
  - Nasopharyngitis [Recovered/Resolved]
  - Dry skin [Recovered/Resolved]
  - Headache [Recovered/Resolved]
  - Hot flush [Recovered/Resolved]
  - Balance disorder [Recovered/Resolved]
  - Asthenia [Recovered/Resolved]
  - Fat tissue increased [Recovered/Resolved]
  - Alopecia [Recovered/Resolved]

NARRATIVE: CASE EVENT DATE: 20240829
